FAERS Safety Report 7530677-3 (Version None)
Quarter: 2011Q2

REPORT INFORMATION
  Report Type: 
  Country: None (occurrence: None)
  Receive Date: 20110607
  Receipt Date: 20110603
  Transmission Date: 20111010
  Serious: Yes (Other)
  Sender: FDA-Public Use
  Company Number: JP-BAYER-2011-048551

PATIENT
  Age: 73 Year
  Sex: Male

DRUGS (1)
  1. MAGNEVIST [Suspect]
     Indication: NUCLEAR MAGNETIC RESONANCE IMAGING
     Dosage: DAILY DOSE 15 ML
     Route: 042
     Dates: start: 20110603, end: 20110603

REACTIONS (2)
  - LOSS OF CONSCIOUSNESS [None]
  - FEELING ABNORMAL [None]
